FAERS Safety Report 24434012 (Version 1)
Quarter: 2024Q4

REPORT INFORMATION
  Report Type: Spontaneous
  Country: US (occurrence: US)
  Receive Date: 20241014
  Receipt Date: 20241014
  Transmission Date: 20250115
  Serious: No
  Sender: GILEAD
  Company Number: US-GILEAD-2024-0690266

PATIENT
  Age: 77 Year
  Sex: Female

DRUGS (1)
  1. VEKLURY [Suspect]
     Active Substance: REMDESIVIR
     Indication: Coronavirus infection
     Dosage: UNK
     Route: 065

REACTIONS (3)
  - Product storage error [Not Recovered/Not Resolved]
  - Product preparation error [Not Recovered/Not Resolved]
  - Product physical issue [Not Recovered/Not Resolved]
